FAERS Safety Report 4579176-1 (Version None)
Quarter: 2005Q1

REPORT INFORMATION
  Report Type: 
  Country: None (occurrence: None)
  Receive Date: 20050208
  Receipt Date: 20050208
  Transmission Date: 20050727
  Serious: Yes (Death)
  Sender: FDA-Public Use
  Company Number: None

PATIENT
  Age: 60 Year
  Sex: Female
  Weight: 90 kg

DRUGS (17)
  1. AMIODARONE    150MG INJECTION    BAXTER [Suspect]
     Indication: SINUS TACHYCARDIA
     Dosage: 150MG   X 1   INTRAVENOU
     Route: 042
     Dates: start: 20040202, end: 20050201
  2. HEPARIN [Concomitant]
  3. DESFLURANE [Concomitant]
  4. PROTAMINE SULFATE [Concomitant]
  5. VANCOMYCIN [Concomitant]
  6. CARDIOPLEGIC [Concomitant]
  7. NITROGLYCERIN [Concomitant]
  8. LIDOCAINE [Concomitant]
  9. DOPAMINE [Concomitant]
  10. DOBUTAMINE HCL [Concomitant]
  11. DILTIAZEM [Concomitant]
  12. KETORLAC [Concomitant]
  13. ETOMIDATE [Concomitant]
  14. FENTANYL [Concomitant]
  15. EPINEPHRINE [Concomitant]
  16. DIGOXIN [Concomitant]
  17. AMINOCAPROIC ACID [Concomitant]

REACTIONS (5)
  - ACID BASE BALANCE ABNORMAL [None]
  - CARDIO-RESPIRATORY ARREST [None]
  - HEPATIC ENZYME INCREASED [None]
  - HEPATIC FAILURE [None]
  - HYPOTENSION [None]
